FAERS Safety Report 23074650 (Version 1)
Quarter: 2023Q4

REPORT INFORMATION
  Report Type: Spontaneous
  Country: US (occurrence: None)
  Receive Date: 20231016
  Receipt Date: 20231016
  Transmission Date: 20240109
  Serious: No
  Sender: FDA-Public Use
  Company Number: None

PATIENT
  Age: 37 Year
  Sex: Female
  Weight: 120 kg

DRUGS (1)
  1. OCREVUS [Suspect]
     Active Substance: OCRELIZUMAB
     Indication: Multiple sclerosis
     Dosage: OTHER FREQUENCY : Q6 MONTHS;?
     Route: 042
     Dates: start: 20170817

REACTIONS (1)
  - Infusion related reaction [None]

NARRATIVE: CASE EVENT DATE: 20230426
